FAERS Safety Report 25454445 (Version 1)
Quarter: 2025Q2

REPORT INFORMATION
  Report Type: Spontaneous
  Country: FR (occurrence: FR)
  Receive Date: 20250619
  Receipt Date: 20250619
  Transmission Date: 20250716
  Serious: Yes (Congenital Anomaly, Other)
  Sender: AUROBINDO
  Company Number: FR-AFSSAPS-LL2025001003

PATIENT
  Age: 31 Year
  Sex: Female

DRUGS (4)
  1. MIRTAZAPINE [Suspect]
     Active Substance: MIRTAZAPINE
     Indication: Personality disorder
     Route: 048
     Dates: start: 20241205
  2. FLUOXETINE [Suspect]
     Active Substance: FLUOXETINE HYDROCHLORIDE
     Indication: Personality disorder
     Route: 048
     Dates: start: 20241205
  3. CYAMEMAZINE [Suspect]
     Active Substance: CYAMEMAZINE
     Indication: Personality disorder
     Route: 048
     Dates: start: 20241205
  4. LORAZEPAM [Suspect]
     Active Substance: LORAZEPAM
     Indication: Personality disorder
     Route: 048
     Dates: start: 20241205

REACTIONS (2)
  - Congenital central nervous system anomaly [Not Recovered/Not Resolved]
  - Talipes [Not Recovered/Not Resolved]

NARRATIVE: CASE EVENT DATE: 20250519
